FAERS Safety Report 17988313 (Version 1)
Quarter: 2020Q3

REPORT INFORMATION
  Report Type: Spontaneous
  Country: US (occurrence: US)
  Receive Date: 20200706
  Receipt Date: 20200706
  Transmission Date: 20201103
  Serious: Yes (Other)
  Sender: FDA-Public Use
  Company Number: None

PATIENT
  Age: 37 Year
  Sex: Female
  Weight: 65.25 kg

DRUGS (1)
  1. MESALAMINE SUPPOSITORIES, FOR RECTAL USE [Suspect]
     Active Substance: MESALAMINE
     Indication: COLITIS ULCERATIVE
     Dosage: ?          QUANTITY:90 SUPPOSITORY(IES);?
     Route: 054
     Dates: start: 20200628, end: 20200630

REACTIONS (3)
  - Rectal haemorrhage [None]
  - Condition aggravated [None]
  - Product substitution issue [None]

NARRATIVE: CASE EVENT DATE: 20200630
